FAERS Safety Report 23867608 (Version 1)
Quarter: 2024Q2

REPORT INFORMATION
  Report Type: Other
  Country: CA (occurrence: CA)
  Receive Date: 20240517
  Receipt Date: 20240517
  Transmission Date: 20240716
  Serious: Yes (Hospitalization, Other)
  Sender: FDA-Public Use
  Company Number: CA-Nuvo Pharmaceuticals Inc-2157133

PATIENT
  Age: 7 Decade
  Sex: Female

DRUGS (3)
  1. DIAZEPAM [Suspect]
     Active Substance: DIAZEPAM
     Indication: Anxiety
     Route: 065
  2. DULOXETINE [Concomitant]
     Active Substance: DULOXETINE
     Route: 065
  3. CANNABIS SATIVA SUBSP. INDICA TOP [Concomitant]
     Active Substance: CANNABIS SATIVA SUBSP. INDICA TOP
     Route: 065

REACTIONS (3)
  - Postictal psychosis [Recovered/Resolved]
  - Product dose omission in error [Unknown]
  - Drug withdrawal convulsions [Recovered/Resolved]
